FAERS Safety Report 22372189 (Version 20)
Quarter: 2024Q1

REPORT INFORMATION
  Report Type: Spontaneous
  Country: US (occurrence: US)
  Receive Date: 20230526
  Receipt Date: 20240109
  Transmission Date: 20240410
  Serious: Yes (Other)
  Sender: FDA-Public Use
  Company Number: US-ALXN-A202306878

PATIENT
  Age: 54 Year
  Sex: Female

DRUGS (3)
  1. SOLIRIS [Suspect]
     Active Substance: ECULIZUMAB
     Indication: Paroxysmal nocturnal haemoglobinuria
     Dosage: UNK
     Route: 065
     Dates: start: 201808
  2. SOLIRIS [Suspect]
     Active Substance: ECULIZUMAB
     Indication: Myasthenia gravis
     Dosage: 900 MG, UNK
     Route: 065
     Dates: start: 20190923
  3. SOLIRIS [Suspect]
     Active Substance: ECULIZUMAB
     Dosage: UNK
     Route: 065
     Dates: end: 2020

REACTIONS (10)
  - Extravascular haemolysis [Unknown]
  - Bone marrow failure [Unknown]
  - Cerebral thrombosis [Unknown]
  - Aphasia [Unknown]
  - Product dispensing error [Unknown]
  - Infusion site scar [Unknown]
  - Diplopia [Unknown]
  - Madarosis [Unknown]
  - Menopause [Unknown]
  - Fatigue [Not Recovered/Not Resolved]
